FAERS Safety Report 13045860 (Version 1)
Quarter: 2016Q4

REPORT INFORMATION
  Report Type: Report from Study
  Country: US (occurrence: US)
  Receive Date: 20161220
  Receipt Date: 20161220
  Transmission Date: 20170207
  Serious: No
  Sender: FDA-Public Use
  Company Number: US-BIOVITRUM-2015US0631

PATIENT
  Age: 32 Year
  Sex: Male
  Weight: 82 kg

DRUGS (4)
  1. SYMBICORT [Concomitant]
     Active Substance: BUDESONIDE\FORMOTEROL FUMARATE DIHYDRATE
     Route: 055
  2. COLTRAZINE [Concomitant]
     Dosage: 6 MG
     Route: 048
  3. INDOMETACIN [Concomitant]
     Active Substance: INDOMETHACIN
     Dosage: 25 MG
     Route: 048
  4. KINERET [Suspect]
     Active Substance: ANAKINRA
     Route: 058
     Dates: start: 20151002

REACTIONS (3)
  - Injection site swelling [Recovering/Resolving]
  - Injection site pruritus [Recovering/Resolving]
  - Injection site erythema [Unknown]

NARRATIVE: CASE EVENT DATE: 20151005
